FAERS Safety Report 7298368-4 (Version None)
Quarter: 2011Q1

REPORT INFORMATION
  Report Type: 
  Country: None (occurrence: None)
  Receive Date: 20110204
  Receipt Date: 20110125
  Transmission Date: 20110831
  Serious: Yes (Other)
  Sender: FDA-Public Use
  Company Number: PD 140

PATIENT

DRUGS (6)
  1. PARACETAMOL [Concomitant]
  2. THIAMINE [Concomitant]
  3. LEVETIRACETAM [Suspect]
     Indication: DRUG WITHDRAWAL SYNDROME
     Dosage: SEE SECTION B-5
  4. CLONIDINE [Concomitant]
  5. MELPERONE [Concomitant]
  6. DIAZEPAM [Concomitant]

REACTIONS (1)
  - RASH [None]
